FAERS Safety Report 19393133 (Version 1)
Quarter: 2021Q2

REPORT INFORMATION
  Report Type: Spontaneous
  Country: SE (occurrence: SE)
  Receive Date: 20210609
  Receipt Date: 20210609
  Transmission Date: 20210717
  Serious: Yes (Hospitalization)
  Sender: FDA-Public Use
  Company Number: SE-SUN PHARMACEUTICAL INDUSTRIES LTD-2021RR-300057

PATIENT
  Age: 39 Year
  Sex: Male

DRUGS (5)
  1. SERTRALINE [Suspect]
     Active Substance: SERTRALINE HYDROCHLORIDE
     Indication: PRODUCT USED FOR UNKNOWN INDICATION
     Dosage: 100 MILLIGRAM, DAILY, TABLET
     Route: 065
     Dates: start: 202104
  2. QUETIAPINE. [Concomitant]
     Active Substance: QUETIAPINE
     Indication: PRODUCT USED FOR UNKNOWN INDICATION
     Dosage: UNK, 1 TABLET IF NEEDED (MAXIMUM 6 PCS / DAY) (1); AS NECESSARY
     Route: 065
  3. PROPAVAN 25 MG TABLETT [Concomitant]
     Active Substance: PROPIOMAZINE
     Indication: PRODUCT USED FOR UNKNOWN INDICATION
     Dosage: UNK, 1?2 AT NIGHT IF NEEDED (1); AS NECESSARY
     Route: 065
  4. VOXRA 150 MG TABLETT MED MODIFIERAD FRISATTNING [Concomitant]
     Indication: PRODUCT USED FOR UNKNOWN INDICATION
     Dosage: 300 MILLIGRAM, DAILY
     Route: 065
  5. ZOLPIDEM [Concomitant]
     Active Substance: ZOLPIDEM TARTRATE
     Indication: PRODUCT USED FOR UNKNOWN INDICATION
     Dosage: UNK, 1 TABLET OVERNIGHT IF NEEDED (1); AS NECESSARY
     Route: 065

REACTIONS (2)
  - Dizziness [Unknown]
  - Nystagmus [Unknown]

NARRATIVE: CASE EVENT DATE: 20210504
